FAERS Safety Report 13280346 (Version 1)
Quarter: 2017Q1

REPORT INFORMATION
  Report Type: Spontaneous
  Country: US (occurrence: US)
  Receive Date: 20170301
  Receipt Date: 20170301
  Transmission Date: 20170428
  Serious: Yes (Death, Other)
  Sender: FDA-Public Use
  Company Number: US-AMGEN-USASP2017028901

PATIENT
  Age: 62 Year
  Sex: Male

DRUGS (5)
  1. LEUCOVORIN. [Concomitant]
     Active Substance: LEUCOVORIN
     Indication: ANAL SQUAMOUS CELL CARCINOMA
     Dosage: 200 MG/M2, UNK
     Route: 040
  2. 5-FU [Concomitant]
     Active Substance: FLUOROURACIL
     Dosage: 2.4 G/M2, Q2WK (DURING 48 H EVERY 2 WEEKS)
  3. IRINOTECAN [Concomitant]
     Active Substance: IRINOTECAN
     Indication: ANAL SQUAMOUS CELL CARCINOMA
     Dosage: 180 MG/M2, UNK
  4. 5-FU [Concomitant]
     Active Substance: FLUOROURACIL
     Indication: ANAL SQUAMOUS CELL CARCINOMA
     Dosage: 400 MG/M2, UNK
  5. PANITUMUMAB [Suspect]
     Active Substance: PANITUMUMAB
     Indication: ANAL SQUAMOUS CELL CARCINOMA
     Dosage: 6 MG/KG, Q2WK
     Route: 065

REACTIONS (3)
  - Death [Fatal]
  - Pruritus [Unknown]
  - Anaemia [Unknown]
